FAERS Safety Report 6326502-9 (Version None)
Quarter: 2009Q3

REPORT INFORMATION
  Report Type: 
  Country: None (occurrence: None)
  Receive Date: 20090825
  Receipt Date: 20090814
  Transmission Date: 20100115
  Serious: Yes (Other)
  Sender: FDA-Public Use
  Company Number: FR-JNJFOC-20080600945

PATIENT
  Age: 73 Year
  Sex: Male
  Weight: 84 kg

DRUGS (13)
  1. REMICADE [Suspect]
     Route: 042
  2. REMICADE [Suspect]
     Indication: CROHN'S DISEASE
     Route: 042
  3. REMICADE [Suspect]
     Indication: ANKYLOSING SPONDYLITIS
     Route: 042
  4. KARDEGIC [Concomitant]
     Indication: ARRHYTHMIA
  5. PENTASA [Concomitant]
     Route: 048
  6. PENTASA [Concomitant]
     Indication: CROHN'S DISEASE
     Route: 048
  7. FIVASA [Concomitant]
     Indication: CROHN'S DISEASE
     Route: 048
  8. MONOCRIXO [Concomitant]
  9. CORTANCYL [Concomitant]
  10. LACTOSE [Concomitant]
  11. PREDNISONE [Concomitant]
  12. MAGNESIUM STEARATE [Concomitant]
  13. KARDEGIC [Concomitant]
     Route: 048

REACTIONS (1)
  - CHRONIC LYMPHOCYTIC LEUKAEMIA [None]
